FAERS Safety Report 24870518 (Version 1)
Quarter: 2025Q1

REPORT INFORMATION
  Report Type: Spontaneous
  Country: BY (occurrence: BY)
  Receive Date: 20250121
  Receipt Date: 20250121
  Transmission Date: 20250408
  Serious: Yes (Hospitalization)
  Sender: JOHNSON AND JOHNSON
  Company Number: BY-JNJFOC-20250133326

PATIENT
  Sex: Male
  Weight: 59 kg

DRUGS (12)
  1. SIRTURO [Suspect]
     Active Substance: BEDAQUILINE FUMARATE
     Indication: Product used for unknown indication
     Dosage: OD FOR 2 WEEKS
     Route: 048
     Dates: start: 20240516
  2. SIRTURO [Suspect]
     Active Substance: BEDAQUILINE FUMARATE
     Dosage: TIW
     Route: 048
     Dates: end: 20241023
  3. PRETOMANID [Suspect]
     Active Substance: PRETOMANID
     Indication: Product used for unknown indication
     Route: 048
     Dates: start: 20240516, end: 20241023
  4. PYRAZINAMIDE [Suspect]
     Active Substance: PYRAZINAMIDE
     Indication: Product used for unknown indication
     Route: 048
     Dates: start: 20240516, end: 20241023
  5. PYRAZINAMIDE [Suspect]
     Active Substance: PYRAZINAMIDE
     Indication: Product used for unknown indication
     Route: 048
     Dates: start: 20240516, end: 20241023
  6. PYRIDOXINE [Concomitant]
     Active Substance: PYRIDOXINE
     Indication: Prophylaxis
     Route: 048
     Dates: start: 20240516, end: 20241022
  7. DICLOFENAC [Concomitant]
     Active Substance: DICLOFENAC
     Dosage: 2.5%
     Route: 030
     Dates: start: 20240910, end: 20240914
  8. METOPROLOL [Concomitant]
     Active Substance: METOPROLOL
     Route: 048
  9. TAMSULOSIN [Concomitant]
     Active Substance: TAMSULOSIN
     Route: 048
  10. TOLPERISONE HCL [Concomitant]
     Dates: start: 20240910
  11. ACYCLOVIR [Concomitant]
     Active Substance: ACYCLOVIR
  12. NITROFURAZONE [Concomitant]
     Active Substance: NITROFURAZONE
     Indication: Encephalitis

REACTIONS (1)
  - Gastrointestinal ulcer haemorrhage [Recovered/Resolved with Sequelae]

NARRATIVE: CASE EVENT DATE: 20241023
